FAERS Safety Report 25716449 (Version 2)
Quarter: 2025Q3

REPORT INFORMATION
  Report Type: Spontaneous
  Country: CA (occurrence: CA)
  Receive Date: 20250822
  Receipt Date: 20250919
  Transmission Date: 20251021
  Serious: Yes (Death, Hospitalization, Other)
  Sender: EXELIXIS
  Company Number: CA-IPSEN Group, Research and Development-2025-10595

PATIENT
  Age: 65 Year
  Sex: Female
  Weight: 50.6 kg

DRUGS (3)
  1. CABOMETYX [Suspect]
     Active Substance: CABOZANTINIB S-MALATE
     Indication: Neuroendocrine tumour
     Dosage: 40 MG, QD
     Route: 048
     Dates: start: 20250403
  2. CABOMETYX [Suspect]
     Active Substance: CABOZANTINIB S-MALATE
     Indication: Off label use
     Dosage: 20 MG, QD
     Route: 048
  3. CABOMETYX [Suspect]
     Active Substance: CABOZANTINIB S-MALATE
     Dosage: 20 MG EVERY OTHER DAY
     Dates: start: 20250326, end: 20250801

REACTIONS (9)
  - Intestinal obstruction [Fatal]
  - Malignant neoplasm progression [Unknown]
  - Fatigue [Recovered/Resolved]
  - Stomatitis [Recovered/Resolved]
  - Abdominal pain [Recovered/Resolved]
  - Muscle spasms [Recovering/Resolving]
  - Ureteric compression [Unknown]
  - Nausea [Unknown]
  - Off label use [Unknown]

NARRATIVE: CASE EVENT DATE: 20250403
